FAERS Safety Report 5873340-7 (Version None)
Quarter: 2008Q3

REPORT INFORMATION
  Report Type: 
  Country: None (occurrence: None)
  Receive Date: 20080829
  Receipt Date: 20080813
  Transmission Date: 20090109
  Serious: Yes (Death, Life-Threatening, Hospitalization)
  Sender: FDA-Public Use
  Company Number: 2008-00827FE

PATIENT
  Age: 17 Month
  Sex: Male

DRUGS (2)
  1. GONADORELIN (GONADORELIN) [Suspect]
     Dosage: 100 MCG ONCE
     Route: 042
     Dates: start: 20061211, end: 20061211
  2. PREGNYL [Suspect]
     Indication: CRYPTORCHISM
     Dosage: 1500 IU
     Route: 015
     Dates: start: 20061211, end: 20061213

REACTIONS (22)
  - ACUTE RESPIRATORY DISTRESS SYNDROME [None]
  - BLOOD PRESSURE INCREASED [None]
  - BRADYCARDIA [None]
  - BRAIN HERNIATION [None]
  - CANDIDIASIS [None]
  - CEREBRAL ISCHAEMIA [None]
  - CIRCULATORY COLLAPSE [None]
  - ELECTROENCEPHALOGRAM ABNORMAL [None]
  - HAEMODIALYSIS [None]
  - INTESTINAL ISCHAEMIA [None]
  - MALAISE [None]
  - MUSCLE TWITCHING [None]
  - NECROTISING COLITIS [None]
  - PERITONITIS [None]
  - POOR PERIPHERAL CIRCULATION [None]
  - PUPIL FIXED [None]
  - RENAL IMPAIRMENT [None]
  - RENAL TUBULAR DISORDER [None]
  - RHABDOMYOLYSIS [None]
  - SEPSIS [None]
  - SYNCOPE [None]
  - VARICELLA [None]
